FAERS Safety Report 6763670-9 (Version None)
Quarter: 2010Q2

REPORT INFORMATION
  Report Type: 
  Country: None (occurrence: None)
  Receive Date: 20100610
  Receipt Date: 20100531
  Transmission Date: 20101027
  Serious: Yes (Other)
  Sender: FDA-Public Use
  Company Number: CA-JNJFOC-20100601474

PATIENT
  Sex: Male
  Weight: 75.6 kg

DRUGS (11)
  1. REMICADE [Suspect]
     Indication: RHEUMATOID ARTHRITIS
     Dosage: 27 INFUSIONS ON UNSPECIFIED DATES
     Route: 042
  2. REMICADE [Suspect]
     Route: 042
  3. REMICADE [Suspect]
     Route: 042
  4. REMICADE [Suspect]
     Dosage: INFUSION 30
     Route: 042
  5. PREDNISONE [Concomitant]
     Route: 048
  6. PARIET [Concomitant]
     Route: 048
  7. NAPROXEN [Concomitant]
     Route: 048
  8. ZOPICLONE [Concomitant]
     Route: 048
  9. METHOTREXATE [Concomitant]
     Route: 048
  10. OXYCET [Concomitant]
     Indication: PAIN
  11. TERBINAFINE [Concomitant]
     Route: 048

REACTIONS (2)
  - BRONCHITIS [None]
  - INTERVERTEBRAL DISC PROTRUSION [None]
